FAERS Safety Report 8405313-4 (Version None)
Quarter: 2012Q2

REPORT INFORMATION
  Report Type: 
  Country: None (occurrence: None)
  Receive Date: 20120604
  Receipt Date: 20120511
  Transmission Date: 20120825
  Serious: No
  Sender: FDA-Public Use
  Company Number: US-ASTRAZENECA-2011SE41401

PATIENT
  Age: 47 Year
  Sex: Female

DRUGS (9)
  1. SAPHRIS [Concomitant]
     Dosage: 5 MG 1 TAB TID
  2. METPORMIN [Concomitant]
  3. NOVOLIN 70/30 [Concomitant]
  4. DIOVAN [Concomitant]
  5. XANAX [Concomitant]
     Indication: ANXIETY
     Dosage: 2 MG 1 TAB TID
  6. NEXIUM [Suspect]
     Indication: GASTROOESOPHAGEAL REFLUX DISEASE
     Route: 048
     Dates: start: 20060101
  7. LEXAPRO [Concomitant]
     Dosage: 20 MG 1 TAB QAM
  8. NEXIUM [Suspect]
     Route: 048
     Dates: start: 20080101
  9. PROPRANOLOL [Concomitant]

REACTIONS (6)
  - EMOTIONAL DISTRESS [None]
  - TIBIA FRACTURE [None]
  - OSTEOMYELITIS [None]
  - DEPRESSION [None]
  - ANKLE FRACTURE [None]
  - FIBULA FRACTURE [None]
